FAERS Safety Report 4359701-6 (Version None)
Quarter: 2004Q2

REPORT INFORMATION
  Report Type: 
  Country: None (occurrence: None)
  Receive Date: 20040518
  Receipt Date: 20040424
  Transmission Date: 20050107
  Serious: Yes (Hospitalization)
  Sender: FDA-Public Use
  Company Number: PHRM2004FR01668

PATIENT
  Age: 73 Year
  Sex: Female
  Weight: 46 kg

DRUGS (2)
  1. ZOMETA [Suspect]
     Indication: HYPERCALCAEMIA OF MALIGNANCY
     Dosage: 4 MG, ONCE/SINGLE
     Route: 042
     Dates: start: 20040419
  2. CORTICOSTEROID NOS [Concomitant]
     Dosage: UNK, UNK
     Dates: end: 20040422

REACTIONS (2)
  - CONFUSIONAL STATE [None]
  - VISUAL DISTURBANCE [None]
